FAERS Safety Report 4411816-X (Version None)
Quarter: 2004Q2

REPORT INFORMATION
  Report Type: 
  Country: None (occurrence: None)
  Receive Date: 20040630
  Receipt Date: 20040326
  Transmission Date: 20050107
  Serious: No
  Sender: FDA-Public Use
  Company Number: 04P-163-0255112-00

PATIENT
  Age: 76 Year
  Sex: Female
  Weight: 70.7611 kg

DRUGS (9)
  1. HUMIRA [Suspect]
     Indication: RHEUMATOID ARTHRITIS
     Dosage: 40 MG, 1 IN 2 WK, SUBCUTANEOUS
     Route: 058
     Dates: start: 20030324
  2. CALTRATE PLUS [Concomitant]
  3. RISEDRONATE SODIUM [Concomitant]
  4. INSULIN GLARGINE [Concomitant]
  5. INSULIN LISPRO [Concomitant]
  6. POLYCARB IN 4% [Concomitant]
  7. SLOVENT 220 [Concomitant]
  8. SALMETEROL XINAFOATE [Concomitant]
  9. LEVOSALBUTAMOL [Concomitant]

REACTIONS (6)
  - ARTHRALGIA [None]
  - BALANCE DISORDER [None]
  - BONE PAIN [None]
  - BURNING SENSATION [None]
  - CONDITION AGGRAVATED [None]
  - PARAESTHESIA [None]
